FAERS Safety Report 6828983-0 (Version None)
Quarter: 2010Q3

REPORT INFORMATION
  Report Type: 
  Country: None (occurrence: None)
  Receive Date: 20100709
  Receipt Date: 20070226
  Transmission Date: 20110219
  Serious: No
  Sender: FDA-Public Use
  Company Number: US-PFIZER INC-2007015687

PATIENT
  Sex: Male

DRUGS (6)
  1. CHANTIX [Suspect]
     Indication: SMOKING CESSATION THERAPY
     Route: 048
     Dates: start: 20070201
  2. HYTRIN [Concomitant]
  3. COMBIVENT [Concomitant]
  4. DUONEB [Concomitant]
  5. ADVAIR DISKUS 100/50 [Concomitant]
  6. ATIVAN [Concomitant]

REACTIONS (2)
  - NAUSEA [None]
  - NERVOUSNESS [None]
